FAERS Safety Report 10285325 (Version 2)
Quarter: 2014Q3

REPORT INFORMATION
  Report Type: Spontaneous
  Country: US (occurrence: US)
  Receive Date: 20140708
  Receipt Date: 20140814
  Transmission Date: 20150326
  Serious: Yes (Hospitalization)
  Sender: FDA-Public Use
  Company Number: US-FRI-1000068689

PATIENT
  Age: 51 Year
  Sex: Female

DRUGS (4)
  1. PAROXETINE [Concomitant]
     Active Substance: PAROXETINE\PAROXETINE HYDROCHLORIDE
     Indication: ANXIETY
     Dosage: 20MG
  2. LINZESS [Suspect]
     Active Substance: LINACLOTIDE
     Indication: IRRITABLE BOWEL SYNDROME
     Dosage: 145MCG
     Route: 048
     Dates: start: 20140613, end: 20140626
  3. LINZESS [Suspect]
     Active Substance: LINACLOTIDE
     Dosage: 290MCG
     Route: 048
     Dates: start: 20140628, end: 20140701
  4. LINZESS [Suspect]
     Active Substance: LINACLOTIDE
     Dosage: 145MCG
     Route: 048
     Dates: start: 20140702

REACTIONS (5)
  - Pupils unequal [Not Recovered/Not Resolved]
  - Syncope [Not Recovered/Not Resolved]
  - Flatulence [Not Recovered/Not Resolved]
  - Heart rate increased [Not Recovered/Not Resolved]
  - Diarrhoea [Not Recovered/Not Resolved]

NARRATIVE: CASE EVENT DATE: 201406
